FAERS Safety Report 13490247 (Version 4)
Quarter: 2019Q2

REPORT INFORMATION
  Report Type: Report from Study
  Country: US (occurrence: US)
  Receive Date: 20170427
  Receipt Date: 20190521
  Transmission Date: 20190711
  Serious: Yes (Death, Hospitalization, Other)
  Sender: FDA-Public Use
  Company Number: US-BRISTOL-MYERS SQUIBB COMPANY-BMS-2017-035838

PATIENT
  Age: 13 Year
  Sex: Female

DRUGS (2)
  1. BLINDED ABATACEPT [Suspect]
     Active Substance: ABATACEPT
     Indication: GRAFT VERSUS HOST DISEASE
     Dosage: 577 MG, UNK
     Route: 042
     Dates: start: 20160120, end: 20160218
  2. BLINDED PLACEBO [Suspect]
     Active Substance: INVESTIGATIONAL PRODUCT
     Indication: GRAFT VERSUS HOST DISEASE
     Dosage: 577 MG, UNK
     Route: 042
     Dates: start: 20160120, end: 20160218

REACTIONS (4)
  - Respiratory failure [Fatal]
  - Pyrexia [Recovered/Resolved]
  - Diarrhoea [Fatal]
  - Abdominal pain [Fatal]

NARRATIVE: CASE EVENT DATE: 20160225
